FAERS Safety Report 25202649 (Version 1)
Quarter: 2025Q2

REPORT INFORMATION
  Report Type: Spontaneous
  Country: US (occurrence: US)
  Receive Date: 20250416
  Receipt Date: 20250416
  Transmission Date: 20250716
  Serious: Yes (Hospitalization)
  Sender: AUROBINDO
  Company Number: US-MLMSERVICE-20250319-PI450944-00149-1

PATIENT

DRUGS (3)
  1. FLECAINIDE [Suspect]
     Active Substance: FLECAINIDE
     Indication: Rhabdomyoma
     Route: 065
  2. FLECAINIDE [Suspect]
     Active Substance: FLECAINIDE
     Indication: Benign pericardium neoplasm
  3. FLECAINIDE [Suspect]
     Active Substance: FLECAINIDE
     Indication: Ventricular pre-excitation

REACTIONS (2)
  - Toxicity to various agents [Unknown]
  - Supraventricular tachycardia [Unknown]
